FAERS Safety Report 10700394 (Version 1)
Quarter: 2015Q1

REPORT INFORMATION
  Report Type: Spontaneous
  Country: FR (occurrence: None)
  Receive Date: 20150107
  Receipt Date: 20150107
  Transmission Date: 20150721
  Serious: Yes (Hospitalization)
  Sender: FDA-Public Use
  Company Number: 2688658

PATIENT
  Age: 51 Year
  Sex: Male

DRUGS (7)
  1. VITAMINE B12 AGUETTANT [Suspect]
     Active Substance: CYANOCOBALAMIN
     Indication: LUNG ADENOCARCINOMA METASTATIC
     Route: 030
     Dates: start: 20140109
  2. (ONDANSETRONE [Suspect]
     Active Substance: ONDANSETRON HYDROCHLORIDE
     Indication: LUNG ADENOCARCINOMA METASTATIC
     Dosage: UNKNOWN, UNKNOWN, INTRAVENOUS (NOT OTHERWISE SPECIFIED)
     Route: 042
     Dates: start: 20140109
  3. ACTISKENAN [Concomitant]
     Active Substance: MORPHINE SULFATE
  4. (METHYLPREDNISOLONE MERCK) [Suspect]
     Active Substance: METHYLPREDNISOLONE
     Indication: LUNG ADENOCARCINOMA METASTATIC
     Dosage: UNKNOWN, UNKNOWN, INTRAVENOUS (NOT OTHERWISE SPECIFIED)
     Route: 042
     Dates: start: 20140109
  5. SKENAN [Concomitant]
     Active Substance: MORPHINE SULFATE
  6. CARBOPLATIN. [Suspect]
     Active Substance: CARBOPLATIN
     Indication: LUNG ADENOCARCINOMA METASTATIC
     Route: 041
     Dates: start: 20140109
  7. ALIMTA [Suspect]
     Active Substance: PEMETREXED DISODIUM
     Indication: LUNG ADENOCARCINOMA METASTATIC
     Dosage: UNKNOWN, UNKNOWN, INTRAVENOUS DRIP
     Route: 041
     Dates: start: 20140109

REACTIONS (8)
  - Vomiting [None]
  - General physical condition abnormal [None]
  - Weight decreased [None]
  - Nausea [None]
  - Asthenia [None]
  - Central pain syndrome [None]
  - Constipation [None]
  - Decreased appetite [None]

NARRATIVE: CASE EVENT DATE: 201401
